FAERS Safety Report 17655856 (Version 1)
Quarter: 2020Q2

REPORT INFORMATION
  Report Type: Spontaneous
  Country: US (occurrence: US)
  Receive Date: 20200410
  Receipt Date: 20200410
  Transmission Date: 20200713
  Serious: No
  Sender: FDA-Public Use
  Company Number: None

PATIENT
  Age: 77 Year
  Sex: Female
  Weight: 58.5 kg

DRUGS (6)
  1. DICLOFENAC SOD DR 75 MG TAB GENERIC FOR VOLTAREN, MFR BLUEPOINT LABOR [Suspect]
     Active Substance: DICLOFENAC SODIUM
     Indication: ARTHRITIS
     Dosage: ?          QUANTITY:180 TABLET(S);?
     Route: 048
  2. BABY ASPIRIN [Concomitant]
     Active Substance: ASPIRIN
  3. CALTRATE [Concomitant]
     Active Substance: CALCIUM CARBONATE
  4. CENTRUM SILVER [Concomitant]
     Active Substance: MINERALS\VITAMINS
  5. FISH OIL 1200MG [Concomitant]
  6. VITAMIN D [Concomitant]
     Active Substance: VITAMIN D NOS

REACTIONS (4)
  - Pain [None]
  - Suspected product quality issue [None]
  - Product substitution issue [None]
  - Arthritis [None]

NARRATIVE: CASE EVENT DATE: 20200202
